FAERS Safety Report 10556454 (Version 3)
Quarter: 2015Q2

REPORT INFORMATION
  Report Type: Spontaneous
  Country: US (occurrence: US)
  Receive Date: 20141031
  Receipt Date: 20150626
  Transmission Date: 20150821
  Serious: Yes (Hospitalization, Other)
  Sender: FDA-Public Use
  Company Number: US-UCBSA-2014016321

PATIENT
  Age: 34 Year
  Sex: Female
  Weight: 61.23 kg

DRUGS (7)
  1. METHYLDOPA. [Concomitant]
     Active Substance: METHYLDOPA
     Indication: HYPERTENSION
     Dosage: UNK
     Route: 048
  2. CIMZIA [Suspect]
     Active Substance: CERTOLIZUMAB PEGOL
     Indication: CROHN^S DISEASE
     Dosage: 400 MG, MONTHLY (QM)
     Route: 058
     Dates: start: 2004, end: 2007
  3. CIMZIA [Suspect]
     Active Substance: CERTOLIZUMAB PEGOL
     Dosage: UNK
     Dates: start: 201501
  4. PRENATAL VITAMINS [Concomitant]
     Active Substance: VITAMINS
     Indication: SUPPLEMENTATION THERAPY
     Dosage: 1 TAB DAILY
     Route: 048
     Dates: start: 2014, end: 2014
  5. CIMZIA [Suspect]
     Active Substance: CERTOLIZUMAB PEGOL
     Dosage: 200 MG, EV 2 WEEKS(QOW)
     Route: 058
     Dates: start: 2007
  6. CIMZIA [Suspect]
     Active Substance: CERTOLIZUMAB PEGOL
     Dosage: ONCE IN 4 WEEKS
     Dates: end: 2014
  7. PREVACID [Concomitant]
     Active Substance: LANSOPRAZOLE
     Indication: CROHN^S DISEASE
     Dosage: 30 MG DAILY
     Route: 048

REACTIONS (10)
  - Renal failure [Unknown]
  - Hyperemesis gravidarum [Recovering/Resolving]
  - Anaemia [Unknown]
  - Crohn^s disease [Recovered/Resolved]
  - Drug ineffective [Unknown]
  - Post procedural haemorrhage [Recovered/Resolved]
  - Pregnancy [Unknown]
  - Abortion induced [Recovered/Resolved]
  - Off label use [Unknown]
  - HELLP syndrome [Recovered/Resolved]

NARRATIVE: CASE EVENT DATE: 2007
